APPROVED DRUG PRODUCT: BOSULIF
Active Ingredient: BOSUTINIB MONOHYDRATE
Strength: EQ 50MG BASE
Dosage Form/Route: CAPSULE;ORAL
Application: N217729 | Product #001
Applicant: PF PRISM CV
Approved: Sep 26, 2023 | RLD: Yes | RS: No | Type: RX

PATENTS:
Patent 11103497 | Expires: Feb 28, 2034
Patent 11103497 | Expires: Feb 28, 2034
Patent 7417148 | Expires: Dec 11, 2025
Patent 7417148 | Expires: Dec 11, 2025
Patent 7767678 | Expires: Nov 23, 2026
Patent 7919625 | Expires: Dec 11, 2025
Patent 11103497*PED | Expires: Aug 28, 2034
Patent 7919625*PED | Expires: Jun 11, 2026
Patent 7767678*PED | Expires: May 23, 2027
Patent 7417148*PED | Expires: Jun 11, 2026

EXCLUSIVITY:
Code: NP | Date: Sep 26, 2026
Code: ODE-444 | Date: Sep 26, 2030
Code: PED | Date: Mar 26, 2031
Code: PED | Date: Mar 26, 2027